FAERS Safety Report 4941756-9 (Version None)
Quarter: 2006Q1

REPORT INFORMATION
  Report Type: 
  Country: None (occurrence: None)
  Receive Date: 20060307
  Receipt Date: 20060303
  Transmission Date: 20060701
  Serious: Yes (Hospitalization)
  Sender: FDA-Public Use
  Company Number: 200610186BYL

PATIENT
  Age: 29 Year
  Sex: Male

DRUGS (3)
  1. AVELOX [Suspect]
     Indication: BRONCHITIS ACUTE
     Dosage: 400 MG, QD, ORAL
     Route: 048
     Dates: start: 20060128, end: 20060130
  2. COUGHNOL L [Concomitant]
  3. MUCOSTA [Concomitant]

REACTIONS (4)
  - APTYALISM [None]
  - BLOOD PRESSURE INCREASED [None]
  - NAUSEA [None]
  - PALPITATIONS [None]
